FAERS Safety Report 6431714-X (Version None)
Quarter: 2009Q4

REPORT INFORMATION
  Report Type: 
  Country: None (occurrence: None)
  Receive Date: 20091103
  Receipt Date: 20091019
  Transmission Date: 20100525
  Serious: Yes (Life-Threatening, Hospitalization)
  Sender: FDA-Public Use
  Company Number: 02100-JPN-07-0210

PATIENT
  Age: 72 Year
  Sex: Male
  Weight: 61.8 kg

DRUGS (4)
  1. PLETAL [Suspect]
     Indication: CEREBRAL INFARCTION
     Dosage: 100 MG, BID, ORAL
     Route: 048
     Dates: start: 20060614, end: 20070417
  2. APLACE (TROXIPIDE) TABLET [Concomitant]
  3. LOXONIN (LOXOPROFEN SODIUM) TABLET [Concomitant]
  4. OLMETEC (OLMESARTAN MEDOXOMIL) TABLET [Concomitant]

REACTIONS (4)
  - HAEMATEMESIS [None]
  - POST PROCEDURAL HAEMORRHAGE [None]
  - SHOCK HAEMORRHAGIC [None]
  - TOOTH EXTRACTION [None]
